FAERS Safety Report 8236688-7 (Version None)
Quarter: 2012Q1

REPORT INFORMATION
  Report Type: 
  Country: None (occurrence: None)
  Receive Date: 20120326
  Receipt Date: 20120326
  Transmission Date: 20120608
  Serious: No
  Sender: FDA-Public Use
  Company Number: None

PATIENT
  Age: 54 Year
  Sex: Female

DRUGS (15)
  1. FLONASE [Concomitant]
  2. LITHIUM CARBONATE [Concomitant]
  3. SYNTHROID [Concomitant]
  4. COGENTIN [Concomitant]
  5. GEODON [Concomitant]
  6. SLOW FE 142 [Concomitant]
  7. COMBIVENT [Concomitant]
  8. CALTRATE 600 W-D [Concomitant]
  9. NORVASC [Concomitant]
  10. MULTI-VITAMINS [Concomitant]
  11. LEVOTHYROXINE SODIUM [Suspect]
     Dosage: 50 MCG Q 6AM PO
     Route: 048
  12. VIT D3 [Concomitant]
  13. FLONASE [Concomitant]
  14. KAY CIEL DURA-TABS [Concomitant]
  15. ZEBETA [Concomitant]

REACTIONS (2)
  - PERIORBITAL OEDEMA [None]
  - SWELLING FACE [None]
